FAERS Safety Report 16770626 (Version 2)
Quarter: 2020Q2

REPORT INFORMATION
  Report Type: Spontaneous
  Country: US (occurrence: US)
  Receive Date: 20190904
  Receipt Date: 20200410
  Transmission Date: 20200713
  Serious: Yes (Death)
  Sender: FDA-Public Use
  Company Number: US-TEVA-2019-US-1102442

PATIENT
  Sex: Female

DRUGS (1)
  1. DESOXIMETASONE. [Suspect]
     Active Substance: DESOXIMETASONE
     Route: 065

REACTIONS (3)
  - Death [Fatal]
  - Product container issue [Unknown]
  - Rash [Unknown]
